FAERS Safety Report 11471470 (Version 1)
Quarter: 2015Q3

REPORT INFORMATION
  Report Type: Spontaneous
  Country: US (occurrence: US)
  Receive Date: 20150908
  Receipt Date: 20150908
  Transmission Date: 20151125
  Serious: Yes (Other)
  Sender: FDA-Public Use
  Company Number: US-SMITH AND NEPHEW, INC-2015SMT00282

PATIENT
  Age: 56 Year
  Sex: Female
  Weight: 136.5 kg

DRUGS (1)
  1. REGRANEX [Suspect]
     Active Substance: BECAPLERMIN
     Indication: DIABETIC ULCER
     Dosage: UNK %, UNK
     Route: 061
     Dates: start: 20150710, end: 20150809

REACTIONS (3)
  - Migraine [Unknown]
  - Wound abscess [None]
  - Enterococcal infection [Recovering/Resolving]

NARRATIVE: CASE EVENT DATE: 20150809
